FAERS Safety Report 17852234 (Version 1)
Quarter: 2020Q2

REPORT INFORMATION
  Report Type: Report from Study
  Country: US (occurrence: US)
  Receive Date: 20200602
  Receipt Date: 20200602
  Transmission Date: 20200714
  Serious: Yes (Hospitalization, Other)
  Sender: FDA-Public Use
  Company Number: US-BAYER-2020-100502

PATIENT

DRUGS (3)
  1. TICAGRELOR. [Concomitant]
     Active Substance: TICAGRELOR
     Dosage: 180 MG
     Route: 048
  2. CANGRELOR [Suspect]
     Active Substance: CANGRELOR
  3. ASPIRIN 81 MG [Suspect]
     Active Substance: ASPIRIN

REACTIONS (3)
  - Labelled drug-drug interaction medication error [Recovered/Resolved]
  - Subdural haemorrhage [Recovered/Resolved]
  - Product administration error [Recovered/Resolved]
